FAERS Safety Report 9472823 (Version 2)
Quarter: 2013Q3

REPORT INFORMATION
  Report Type: Report from Study
  Country: CA (occurrence: CA)
  Receive Date: 20130823
  Receipt Date: 20130823
  Transmission Date: 20140515
  Serious: Yes (Hospitalization)
  Sender: FDA-Public Use
  Company Number: PHHO2010CA00745

PATIENT
  Age: 67 Year
  Sex: Male
  Weight: 81 kg

DRUGS (2)
  1. PLACEBO [Suspect]
     Indication: CORONARY ARTERY DISEASE
     Dosage: UNK
     Route: 048
     Dates: start: 20091210, end: 20091219
  2. ALISKIREN [Suspect]
     Indication: CORONARY ARTERY DISEASE
     Dosage: 150 MG, UNK
     Route: 048
     Dates: start: 20091202, end: 20091209

REACTIONS (1)
  - Musculoskeletal chest pain [Not Recovered/Not Resolved]
